FAERS Safety Report 7997482-5 (Version None)
Quarter: 2011Q4

REPORT INFORMATION
  Report Type: 
  Country: None (occurrence: None)
  Receive Date: 20111221
  Receipt Date: 20111221
  Transmission Date: 20120403
  Serious: No
  Sender: FDA-Public Use
  Company Number: None

PATIENT
  Age: 55 Year
  Sex: Female
  Weight: 51.709 kg

DRUGS (1)
  1. ATELVIA [Suspect]
     Indication: OSTEOPENIA
     Dosage: 1 35 MG TABLET
     Route: 048
     Dates: start: 20111219, end: 20111219

REACTIONS (3)
  - DIARRHOEA [None]
  - INFLUENZA LIKE ILLNESS [None]
  - VOMITING [None]
